FAERS Safety Report 13240774 (Version 2)
Quarter: 2017Q1

REPORT INFORMATION
  Report Type: Report from Study
  Country: GB (occurrence: GB)
  Receive Date: 20170216
  Receipt Date: 20170216
  Transmission Date: 20170428
  Serious: Yes (Death, Other)
  Sender: FDA-Public Use
  Company Number: GB-SA-2017SA025188

PATIENT
  Age: 10 Year
  Sex: Female

DRUGS (3)
  1. ANTI-THYMOCYTE GLOBULIN (RABBIT) [Suspect]
     Active Substance: LAPINE T-LYMPHOCYTE IMMUNE GLOBULIN
     Indication: BONE MARROW CONDITIONING REGIMEN
     Route: 065
  2. ARA-C [Suspect]
     Active Substance: CYTARABINE
     Indication: BONE MARROW CONDITIONING REGIMEN
     Route: 065
  3. FLUDARABINE PHOSPHATE. [Suspect]
     Active Substance: FLUDARABINE PHOSPHATE
     Indication: BONE MARROW CONDITIONING REGIMEN
     Route: 065

REACTIONS (6)
  - Cytomegalovirus infection [Unknown]
  - Respiratory tract infection fungal [Recovered/Resolved]
  - Off label use [Unknown]
  - Encephalopathy [Fatal]
  - Pyrexia [Recovered/Resolved]
  - Adenovirus infection [Recovered/Resolved]
